FAERS Safety Report 7279734-X (Version None)
Quarter: 2011Q1

REPORT INFORMATION
  Report Type: 
  Country: None (occurrence: None)
  Receive Date: 20110208
  Receipt Date: 20110127
  Transmission Date: 20110831
  Serious: Yes (Other)
  Sender: FDA-Public Use
  Company Number: PHFR2011GB01124

PATIENT
  Sex: Female

DRUGS (2)
  1. TEGRETOL [Suspect]
     Dosage: 200 MG, UNK
  2. TEGRETOL [Suspect]
     Dosage: 100 MG, UNK

REACTIONS (3)
  - MOVEMENT DISORDER [None]
  - FEELING ABNORMAL [None]
  - MONOPARESIS [None]
